FAERS Safety Report 16599119 (Version 1)
Quarter: 2019Q3

REPORT INFORMATION
  Report Type: Spontaneous
  Country: DE (occurrence: DE)
  Receive Date: 20190719
  Receipt Date: 20190719
  Transmission Date: 20191004
  Serious: Yes (Hospitalization)
  Sender: FDA-Public Use
  Company Number: PHHY2019DE163924

PATIENT
  Age: 61 Year
  Sex: Female
  Weight: 116 kg

DRUGS (8)
  1. ZOPICLON RATIOPHARM [Concomitant]
     Active Substance: ZOPICLONE
     Indication: PRODUCT USED FOR UNKNOWN INDICATION
     Dosage: 7.5 MG, QD (0-0-0-1)
     Route: 048
  2. SEROQUEL [Suspect]
     Active Substance: QUETIAPINE FUMARATE
     Indication: PRODUCT USED FOR UNKNOWN INDICATION
     Dosage: 400 MG, BID ( 1-0-1-0, RETARD-TABLETTEN)
     Route: 048
  3. VIANI [Concomitant]
     Active Substance: FLUTICASONE PROPIONATE\SALMETEROL XINAFOATE
     Indication: PRODUCT USED FOR UNKNOWN INDICATION
     Dosage: 50/250 ?G, QD (1-0-1-0), DOSIERAEROSOL
     Route: 055
  4. TRAZODON NEURAXPHARM [Concomitant]
     Active Substance: TRAZODONE HYDROCHLORIDE
     Indication: PRODUCT USED FOR UNKNOWN INDICATION
     Dosage: 100 MG, QD (0-0-0-0.5, TABLETTEN)
     Route: 048
  5. SPIRIVA [Concomitant]
     Active Substance: TIOTROPIUM BROMIDE MONOHYDRATE
     Indication: PRODUCT USED FOR UNKNOWN INDICATION
     Dosage: 18 UG, QD (1-0-0-0) DOSIERAEROSOL
     Route: 055
  6. RAMIPRIL HEXAL COMP [Suspect]
     Active Substance: HYDROCHLOROTHIAZIDE\RAMIPRIL
     Indication: PRODUCT USED FOR UNKNOWN INDICATION
     Dosage: QD (5/12.5 MG, QD (1-0-0-0), TABLETTEN)
     Route: 048
  7. RISPERDAL [Suspect]
     Active Substance: RISPERIDONE
     Indication: PRODUCT USED FOR UNKNOWN INDICATION
     Dosage: 3 MG, BID (1-0-1-0, TABLETTEN)
     Route: 048
  8. BISOPROLOL [Concomitant]
     Active Substance: BISOPROLOL
     Indication: PRODUCT USED FOR UNKNOWN INDICATION
     Dosage: 5 MG, QD (1-0-0-0, TABLETTEN)
     Route: 048

REACTIONS (6)
  - Apathy [Unknown]
  - Face oedema [Unknown]
  - Electrolyte imbalance [Unknown]
  - Cough [Unknown]
  - Product prescribing error [Unknown]
  - Fatigue [Unknown]
